FAERS Safety Report 7990933-1 (Version None)
Quarter: 2011Q4

REPORT INFORMATION
  Report Type: 
  Country: None (occurrence: None)
  Receive Date: 20111219
  Receipt Date: 20111214
  Transmission Date: 20120403
  Serious: Yes (Other)
  Sender: FDA-Public Use
  Company Number: NZ-ROCHE-1018110

PATIENT
  Sex: Male
  Weight: 37.8 kg

DRUGS (11)
  1. NEORECORMON [Suspect]
     Route: 058
     Dates: start: 20111028
  2. LAMIVUDINE [Suspect]
     Dosage: DOSE REDUCED
     Route: 048
  3. MYCOPHENOLATE MOFETIL [Suspect]
     Dosage: DOSE REDUCED
     Route: 048
  4. NEORECORMON [Suspect]
     Indication: ANAEMIA
     Route: 058
     Dates: start: 20111031
  5. MYCOPHENOLATE MOFETIL [Suspect]
     Indication: TRANSPLANT
     Dosage: 750/500
     Route: 048
  6. TACROLIMUS [Concomitant]
     Indication: TRANSPLANT
     Route: 048
     Dates: start: 20080101
  7. LAMIVUDINE [Suspect]
     Indication: HEPATITIS B
     Route: 048
     Dates: start: 20100101
  8. TENOFOVIR [Concomitant]
     Indication: HEPATITIS B
     Route: 048
     Dates: start: 20100101
  9. NEORECORMON [Suspect]
     Route: 058
     Dates: start: 20111028
  10. GABAPENTIN [Concomitant]
     Indication: PAIN
     Route: 048
  11. NORTRIPTYLINE HCL [Concomitant]
     Indication: PAIN
     Route: 048
     Dates: start: 20100101

REACTIONS (2)
  - ANAEMIA [None]
  - NO THERAPEUTIC RESPONSE [None]
